FAERS Safety Report 14776685 (Version 2)
Quarter: 2018Q4

REPORT INFORMATION
  Report Type: Spontaneous
  Country: FR (occurrence: FR)
  Receive Date: 20180419
  Receipt Date: 20181025
  Transmission Date: 20190204
  Serious: Yes (Other)
  Sender: FDA-Public Use
  Company Number: FR-MERCK KGAA-2045994

PATIENT
  Age: 41 Year
  Sex: Female
  Weight: 120 kg

DRUGS (1)
  1. EUTHYROX [Suspect]
     Active Substance: LEVOTHYROXINE SODIUM
     Indication: POST PROCEDURAL HYPOTHYROIDISM
     Route: 048
     Dates: start: 20170815, end: 2017

REACTIONS (19)
  - Headache [Recovered/Resolved]
  - Fatigue [Recovered/Resolved]
  - Sleep disorder [Recovered/Resolved]
  - Mobility decreased [Recovered/Resolved]
  - Blood thyroid stimulating hormone decreased [Recovered/Resolved]
  - Suicidal ideation [Recovered/Resolved]
  - Amnesia [Recovered/Resolved]
  - Palpitations [Recovered/Resolved]
  - Alopecia [Recovered/Resolved]
  - Loss of personal independence in daily activities [Recovered/Resolved]
  - Myalgia [Recovered/Resolved]
  - Decreased interest [Recovered/Resolved]
  - Mood swings [Recovered/Resolved]
  - Gait inability [Recovered/Resolved]
  - Dizziness [Recovered/Resolved]
  - Insomnia [Recovered/Resolved]
  - Middle insomnia [Recovered/Resolved]
  - Hypertension [Recovered/Resolved]
  - Social problem [Recovered/Resolved]

NARRATIVE: CASE EVENT DATE: 20170815
